FAERS Safety Report 8731221 (Version 3)
Quarter: 2012Q4

REPORT INFORMATION
  Report Type: 
  Country: US (occurrence: US)
  Receive Date: 20120820
  Receipt Date: 20120907
  Transmission Date: 20130627
  Serious: No
  Sender: FDA-Public Use
  Company Number: US-PFIZER INC-2012198591

PATIENT
  Age: 55 Year
  Sex: Female
  Weight: 85.71 kg

DRUGS (2)
  1. DETROL LA [Suspect]
     Indication: URINARY INCONTINENCE
     Dosage: 4 mg, 1x/day
     Route: 048
     Dates: end: 201208
  2. LYRICA [Concomitant]
     Indication: NERVE INJURY
     Dosage: 25 mg capsule in the morning and 75 mg capsule at night, 2x/day
     Route: 048

REACTIONS (2)
  - Drug ineffective [Unknown]
  - Insomnia [Not Recovered/Not Resolved]
